FAERS Safety Report 12390301 (Version 2)
Quarter: 2016Q2

REPORT INFORMATION
  Report Type: Spontaneous
  Country: SE (occurrence: SE)
  Receive Date: 20160520
  Receipt Date: 20160606
  Transmission Date: 20160815
  Serious: Yes (Hospitalization)
  Sender: FDA-Public Use
  Company Number: SE-PFIZER INC-2016193091

PATIENT
  Age: 63 Year
  Sex: Female

DRUGS (2)
  1. LYRICA [Suspect]
     Active Substance: PREGABALIN
     Dosage: 12.5 MG, UNK
     Route: 048
  2. LYRICA [Suspect]
     Active Substance: PREGABALIN
     Indication: PAIN
     Dosage: 25 MG, DAILY
     Route: 048
     Dates: start: 201603

REACTIONS (8)
  - Visual impairment [Recovered/Resolved]
  - Dizziness [Recovered/Resolved]
  - Drug ineffective [Unknown]
  - Product use issue [Unknown]
  - Migraine [Recovered/Resolved]
  - Anxiety [Recovered/Resolved]
  - Drug prescribing error [Unknown]
  - Headache [Recovered/Resolved]

NARRATIVE: CASE EVENT DATE: 201603
